FAERS Safety Report 6045846-1 (Version None)
Quarter: 2009Q1

REPORT INFORMATION
  Report Type: 
  Country: None (occurrence: None)
  Receive Date: 20090121
  Receipt Date: 20090113
  Transmission Date: 20090719
  Serious: Yes (Hospitalization)
  Sender: FDA-Public Use
  Company Number: US-B.I. PHARMACEUTICALS,INC./RIDGEFIELD-2009-BP-00433BP

PATIENT
  Age: 26 Year
  Sex: Male

DRUGS (3)
  1. VIRAMUNE [Suspect]
     Indication: HIV INFECTION
     Dosage: 400MG
     Route: 048
     Dates: start: 20081201
  2. EPZICOM [Suspect]
     Indication: HIV INFECTION
     Dates: start: 20070101
  3. SUSTIVA [Concomitant]
     Indication: HIV INFECTION
     Dates: start: 20070101, end: 20081101

REACTIONS (10)
  - ALANINE AMINOTRANSFERASE INCREASED [None]
  - ASPARTATE AMINOTRANSFERASE INCREASED [None]
  - BILIRUBIN CONJUGATED INCREASED [None]
  - DEHYDRATION [None]
  - HEPATITIS CHOLESTATIC [None]
  - MYALGIA [None]
  - NAUSEA [None]
  - PRURITUS [None]
  - PYREXIA [None]
  - VOMITING [None]
